FAERS Safety Report 12671540 (Version 1)
Quarter: 2016Q3

REPORT INFORMATION
  Report Type: Other
  Country: US (occurrence: US)
  Receive Date: 20160822
  Receipt Date: 20160822
  Transmission Date: 20161109
  Serious: Yes (Other)
  Sender: FDA-Public Use
  Company Number: US-LUPIN PHARMACEUTICALS INC.-2016-03718

PATIENT
  Age: 79 Year
  Sex: Male

DRUGS (1)
  1. NIACIN EXTENDED RELEASE [Suspect]
     Active Substance: NIACIN
     Indication: PRODUCT USED FOR UNKNOWN INDICATION
     Dosage: 3000 MG
     Route: 065

REACTIONS (1)
  - Pancytopenia [Unknown]
